FAERS Safety Report 7037317-0 (Version None)
Quarter: 2010Q4

REPORT INFORMATION
  Report Type: 
  Country: None (occurrence: None)
  Receive Date: 20101011
  Receipt Date: 20100929
  Transmission Date: 20110411
  Serious: Yes (Other)
  Sender: FDA-Public Use
  Company Number: DE-ROCHE-731617

PATIENT
  Age: 41 Year
  Sex: Female

DRUGS (2)
  1. AVASTIN [Suspect]
     Indication: GLIOBLASTOMA
     Dosage: FOUR CYCLES GIVEN
     Route: 065
  2. IRINOTECAN [Concomitant]
     Indication: GLIOBLASTOMA
     Dosage: FOUR CYCLES GIVEN

REACTIONS (2)
  - BLINDNESS [None]
  - OPTIC NEUROPATHY [None]
